FAERS Safety Report 5428539-0 (Version None)
Quarter: 2007Q3

REPORT INFORMATION
  Report Type: 
  Country: None (occurrence: None)
  Receive Date: 20070731
  Receipt Date: 20070428
  Transmission Date: 20080115
  Serious: No
  Sender: FDA-Public Use
  Company Number: US200704006458

PATIENT
  Age: 57 Year
  Sex: Male

DRUGS (12)
  1. BYETTA [Suspect]
     Indication: TYPE 2 DIABETES MELLITUS
     Dosage: 5 UG, 2/D, SUBCUTANEOUS : 10 UG, 2/D, SUBCUTANEOUS
     Route: 058
     Dates: start: 20061201, end: 20070101
  2. BYETTA [Suspect]
     Indication: TYPE 2 DIABETES MELLITUS
     Dosage: 5 UG, 2/D, SUBCUTANEOUS : 10 UG, 2/D, SUBCUTANEOUS
     Route: 058
     Dates: start: 20070101
  3. AMARYL [Concomitant]
  4. MIDAMOR [Concomitant]
  5. K-DUR 10 [Concomitant]
  6. ZAROXOYLN (METOLAZONE) [Concomitant]
  7. LOPRESSOR [Concomitant]
  8. WELLBUTRIN [Concomitant]
  9. ALLOPURINOL [Concomitant]
  10. COUMADIN [Concomitant]
  11. TRAZODONE HCL [Concomitant]
  12. ASPIRIN [Concomitant]

REACTIONS (2)
  - HEPATIC STEATOSIS [None]
  - INJECTION SITE PAIN [None]
